FAERS Safety Report 6404752-0 (Version None)
Quarter: 2009Q4

REPORT INFORMATION
  Report Type: 
  Country: None (occurrence: None)
  Receive Date: 20091016
  Receipt Date: 20091012
  Transmission Date: 20100525
  Serious: Yes (Death, Other)
  Sender: FDA-Public Use
  Company Number: AU-CELGENEUS-008-21880-09080858

PATIENT
  Sex: Female
  Weight: 69 kg

DRUGS (3)
  1. REVLIMID [Suspect]
     Indication: NON-HODGKIN'S LYMPHOMA STAGE III
     Route: 048
     Dates: start: 20081029, end: 20090112
  2. DEXAMETHASONE TAB [Concomitant]
     Indication: NON-HODGKIN'S LYMPHOMA STAGE III
     Route: 048
     Dates: start: 20081029, end: 20090112
  3. ALLOPURINOL [Concomitant]
     Indication: PROPHYLAXIS
     Route: 065
     Dates: start: 20081101, end: 20090112

REACTIONS (3)
  - DISEASE PROGRESSION [None]
  - NEUROPATHY PERIPHERAL [None]
  - NEUTROPENIA [None]
